FAERS Safety Report 9536476 (Version 1)
Quarter: 2013Q2

REPORT INFORMATION
  Report Type: Spontaneous
  Country: US (occurrence: None)
  Receive Date: 20130503
  Receipt Date: 20130503
  Transmission Date: 20140414
  Serious: No
  Sender: FDA-Public Use
  Company Number: 1000043998

PATIENT
  Sex: Male

DRUGS (1)
  1. DALIRESP (ROFLUMILAST) (TABLETS) [Suspect]
     Dosage: 500 MCG (500 MCG, 1 IN 1 D)

REACTIONS (3)
  - Decreased appetite [None]
  - Weight decreased [None]
  - Tremor [None]
